FAERS Safety Report 12407883 (Version 4)
Quarter: 2017Q3

REPORT INFORMATION
  Report Type: Spontaneous
  Country: GB (occurrence: GB)
  Receive Date: 20160526
  Receipt Date: 20170804
  Transmission Date: 20171127
  Serious: Yes (Other)
  Sender: FDA-Public Use
  Company Number: GB-AMGEN-GBRSP2016053688

PATIENT
  Age: 76 Year
  Sex: Male

DRUGS (15)
  1. LEVOTHYROXINE. [Concomitant]
     Active Substance: LEVOTHYROXINE
     Dosage: 150 MG, QD
  2. BISOPROLOL [Concomitant]
     Active Substance: BISOPROLOL
     Dosage: 1.25 MG, QD
  3. DESFERRIOXAMINE [Concomitant]
     Active Substance: DEFEROXAMINE MESYLATE
  4. SODIUM BICARBONATE. [Concomitant]
     Active Substance: SODIUM BICARBONATE
     Dosage: 2-3 TIMES, QD
  5. SODIUM BICARBONATE. [Concomitant]
     Active Substance: SODIUM BICARBONATE
     Dosage: 500 MG, 6 A DAY
  6. ERYTHROMYCIN. [Concomitant]
     Active Substance: ERYTHROMYCIN
     Dosage: 500 MG, BID
  7. SOLIRIS [Concomitant]
     Active Substance: ECULIZUMAB
     Dosage: 900 MG, Q2WK
     Route: 042
  8. FUROSEMIDE. [Concomitant]
     Active Substance: FUROSEMIDE
     Dosage: 20 MG, QD
  9. FOLIC ACID. [Concomitant]
     Active Substance: FOLIC ACID
     Dosage: 5 MG, QD
  10. CIPROFLOXACIN. [Concomitant]
     Active Substance: CIPROFLOXACIN
     Dosage: 25 MG, QD
  11. OMEPRAZOLE. [Concomitant]
     Active Substance: OMEPRAZOLE
     Dosage: 20 MG, QD
  12. ARANESP [Suspect]
     Active Substance: DARBEPOETIN ALFA
     Indication: PRODUCT USED FOR UNKNOWN INDICATION
     Dosage: 160 MUG, QWK
     Route: 065
  13. LEVOTHYROXINE. [Concomitant]
     Active Substance: LEVOTHYROXINE
     Dosage: 125 MG, QD
  14. CIPROFLOXACIN. [Concomitant]
     Active Substance: CIPROFLOXACIN
     Dosage: 250 MG, QD
  15. ALFAD [Concomitant]
     Active Substance: ALFACALCIDOL
     Dosage: 0.25 MG, QD

REACTIONS (12)
  - Laceration [Not Recovered/Not Resolved]
  - Hypotension [Unknown]
  - Hypersomnia [Not Recovered/Not Resolved]
  - Fatigue [Not Recovered/Not Resolved]
  - Packed red blood cell transfusion [Unknown]
  - Haemoglobin decreased [Unknown]
  - Dry skin [Not Recovered/Not Resolved]
  - Contusion [Unknown]
  - Jaundice [Unknown]
  - Dyspnoea [Not Recovered/Not Resolved]
  - Impaired healing [Not Recovered/Not Resolved]
  - Skin ulcer [Not Recovered/Not Resolved]

NARRATIVE: CASE EVENT DATE: 2012
